FAERS Safety Report 9307985 (Version 1)
Quarter: 2013Q2

REPORT INFORMATION
  Report Type: Spontaneous
  Country: US (occurrence: US)
  Receive Date: 20130524
  Receipt Date: 20130524
  Transmission Date: 20140414
  Serious: Yes (Other)
  Sender: FDA-Public Use
  Company Number: US-ROCHE-1088590

PATIENT
  Sex: Female
  Weight: 54.48 kg

DRUGS (4)
  1. ACCUTANE [Suspect]
     Indication: ACNE
     Route: 048
     Dates: start: 199912, end: 200211
  2. ACCUTANE [Suspect]
     Route: 065
     Dates: start: 1998, end: 1999
  3. SYNTHROID [Concomitant]
  4. WELLBUTRIN [Concomitant]

REACTIONS (8)
  - Crohn^s disease [Unknown]
  - Colitis ulcerative [Unknown]
  - Irritable bowel syndrome [Unknown]
  - Depression [Unknown]
  - Anxiety [Unknown]
  - Inflammatory bowel disease [Unknown]
  - Acne [Unknown]
  - Large intestinal ulcer [Unknown]
